FAERS Safety Report 25464972 (Version 1)
Quarter: 2025Q2

REPORT INFORMATION
  Report Type: Spontaneous
  Country: US (occurrence: US)
  Receive Date: 20250622
  Receipt Date: 20250622
  Transmission Date: 20250716
  Serious: No
  Sender: UPSHER SMITH LABORATORIES
  Company Number: US-UPSHER-SMITH LABORATORIES, LLC-20250500866

PATIENT
  Age: 79 Year
  Sex: Female

DRUGS (1)
  1. BRIMONIDINE TARTRATE AND TIMOLOL MALEATE OPHTHALMIC SOLUTION 0.2% EQ 0 [Suspect]
     Active Substance: BRIMONIDINE TARTRATE\TIMOLOL MALEATE
     Indication: Glaucoma
     Route: 047
     Dates: start: 20250509, end: 20250521

REACTIONS (3)
  - Malaise [Unknown]
  - Feeling abnormal [Unknown]
  - Drug ineffective [Unknown]

NARRATIVE: CASE EVENT DATE: 20250501
